FAERS Safety Report 4457745-7 (Version None)
Quarter: 2004Q3

REPORT INFORMATION
  Report Type: 
  Country: None (occurrence: None)
  Receive Date: 20040922
  Receipt Date: 20040913
  Transmission Date: 20050211
  Serious: Yes (Hospitalization, Other)
  Sender: FDA-Public Use
  Company Number: 2004066071

PATIENT
  Age: 56 Year
  Sex: Female

DRUGS (3)
  1. SULPERAZON (CEFOPERZONE,  SULBACTAM) [Suspect]
     Indication: PNEUMONIA
     Dosage: 1 GRAM (1 D), INTRAVENOUS
     Route: 042
     Dates: start: 20040603, end: 20040603
  2. POTACOL R (CALCIUM CHLORIDE ANHYDROUS, MALTOSE, POTASIUM CHLORIDE, SOD [Concomitant]
  3. TIMEPIDIUM BROMIDE (TIMEPIDIUM BROMIDE) [Concomitant]

REACTIONS (1)
  - ANAPHYLACTIC SHOCK [None]
